FAERS Safety Report 10221491 (Version 4)
Quarter: 2014Q3

REPORT INFORMATION
  Report Type: Spontaneous
  Country: BR (occurrence: BR)
  Receive Date: 20140606
  Receipt Date: 20140926
  Transmission Date: 20150326
  Serious: Yes (Other)
  Sender: FDA-Public Use
  Company Number: BR-PFIZER INC-2014009103

PATIENT
  Age: 66 Year
  Sex: Male

DRUGS (3)
  1. PARACETAMOL [Suspect]
     Active Substance: ACETAMINOPHEN
  2. SUTENT [Suspect]
     Active Substance: SUNITINIB MALATE
     Indication: RENAL CELL CARCINOMA
     Dosage: 50 MG, 1X/DAY
     Route: 048
  3. SUTENT [Suspect]
     Active Substance: SUNITINIB MALATE
     Dosage: 37.5 MG, ONCE A DAY (CYCLE 4X2)
     Route: 048
     Dates: start: 20131006

REACTIONS (13)
  - Platelet count decreased [Unknown]
  - Asthenia [Recovering/Resolving]
  - Ageusia [Unknown]
  - Arthralgia [Unknown]
  - Drug-induced liver injury [Unknown]
  - Blood uric acid increased [Not Recovered/Not Resolved]
  - Pain in extremity [Unknown]
  - Epistaxis [Unknown]
  - Hypothyroidism [Unknown]
  - Decreased appetite [Recovering/Resolving]
  - Diarrhoea [Unknown]
  - Pallor [Recovering/Resolving]
  - Nail bed bleeding [Unknown]
